FAERS Safety Report 10408441 (Version 1)
Quarter: 2014Q3

REPORT INFORMATION
  Report Type: Spontaneous
  Country: US (occurrence: None)
  Receive Date: 20140825
  Receipt Date: 20140825
  Transmission Date: 20150326
  Serious: Yes (Death)
  Sender: FDA-Public Use
  Company Number: None

PATIENT
  Age: 80 Year
  Sex: Male

DRUGS (2)
  1. CAPECITABINE 500 MG TABLET TAKE 1 DAILY [Suspect]
     Active Substance: CAPECITABINE
     Indication: OESOPHAGEAL CARCINOMA
     Route: 048
     Dates: start: 20140612, end: 20140821
  2. CAPECITABINE [Suspect]
     Active Substance: CAPECITABINE
     Indication: OESOPHAGEAL CARCINOMA
     Route: 048
     Dates: start: 20140612, end: 20140821

REACTIONS (2)
  - Disease progression [None]
  - Disease complication [None]

NARRATIVE: CASE EVENT DATE: 20140821
